FAERS Safety Report 23041079 (Version 1)
Quarter: 2023Q4

REPORT INFORMATION
  Report Type: Spontaneous
  Country: DE (occurrence: DE)
  Receive Date: 20231007
  Receipt Date: 20231007
  Transmission Date: 20240109
  Serious: Yes (Other)
  Sender: FDA-Public Use
  Company Number: DE-TORRENT-00025466

PATIENT
  Age: 49 Year
  Sex: Male

DRUGS (4)
  1. VENLAFAXINE HYDROCHLORIDE [Suspect]
     Active Substance: VENLAFAXINE HYDROCHLORIDE
     Indication: Panic attack
     Dosage: 37.5 MG
     Route: 065
  2. OMEPRAZOLE [Concomitant]
     Active Substance: OMEPRAZOLE
     Indication: Product used for unknown indication
     Dosage: IN THE MORNINGS
     Route: 065
  3. OPIPRAMOL [Concomitant]
     Active Substance: OPIPRAMOL
     Indication: Product used for unknown indication
     Dosage: IN THE EVENINGS
     Route: 065
  4. Tavor [Concomitant]
     Indication: Product used for unknown indication
     Dosage: ON DEMAND
     Route: 065

REACTIONS (8)
  - Pancreatitis relapsing [Unknown]
  - Immunoglobulin G4 related disease [Unknown]
  - Weight increased [Unknown]
  - Pain [Unknown]
  - Diabetes mellitus [Unknown]
  - Visual impairment [Unknown]
  - Myopia [Unknown]
  - Intentional product use issue [Unknown]

NARRATIVE: CASE EVENT DATE: 20230601
